FAERS Safety Report 7400404-9 (Version None)
Quarter: 2011Q2

REPORT INFORMATION
  Report Type: 
  Country: None (occurrence: None)
  Receive Date: 20110407
  Receipt Date: 20110331
  Transmission Date: 20111010
  Serious: Yes (Death, Hospitalization, Other)
  Sender: FDA-Public Use
  Company Number: JP-JNJFOC-20101208736

PATIENT
  Age: 61 Year
  Sex: Female
  Weight: 66 kg

DRUGS (15)
  1. MUCOSTA [Concomitant]
     Indication: PROPHYLAXIS
     Route: 048
  2. POVIDONE IODINE [Concomitant]
     Indication: STOMATITIS
     Route: 049
  3. DEXALTIN [Concomitant]
     Indication: PALMAR-PLANTAR ERYTHRODYSAESTHESIA SYNDROME
     Route: 061
  4. ALOSENN [Concomitant]
     Indication: CONSTIPATION
     Route: 048
  5. MAGLAX [Concomitant]
     Indication: CONSTIPATION
     Route: 048
  6. MYSLEE [Concomitant]
     Indication: PROPHYLAXIS
     Route: 048
  7. WARFARIN SODIUM [Concomitant]
     Indication: DEEP VEIN THROMBOSIS
     Route: 048
  8. OXYCONTIN [Concomitant]
     Indication: OVARIAN CANCER RECURRENT
     Route: 048
  9. OXYCONTIN [Concomitant]
     Route: 048
  10. OXINORM [Concomitant]
     Indication: OVARIAN CANCER RECURRENT
     Route: 048
  11. MORPHINE HYDROCHLORIDE [Concomitant]
     Indication: OVARIAN CANCER RECURRENT
     Route: 042
  12. DOXORUBICIN HCL [Suspect]
     Indication: OVARIAN CANCER RECURRENT
     Dosage: CYCLE 3
     Route: 042
  13. DOXORUBICIN HCL [Suspect]
     Dosage: CYCLE 1
     Route: 042
  14. DOXORUBICIN HCL [Suspect]
     Dosage: CYCLE 2
     Route: 042
  15. DEXALTIN [Concomitant]
     Indication: STOMATITIS
     Route: 061

REACTIONS (3)
  - PLEURAL EFFUSION [None]
  - ASCITES [None]
  - OVARIAN CANCER [None]
